FAERS Safety Report 16730790 (Version 1)
Quarter: 2019Q3

REPORT INFORMATION
  Report Type: Spontaneous
  Country: US (occurrence: US)
  Receive Date: 20190822
  Receipt Date: 20190822
  Transmission Date: 20191005
  Serious: No
  Sender: FDA-Public Use
  Company Number: US-SUNOVION-2019SUN003371

PATIENT
  Age: 70 Year
  Sex: Female
  Weight: 49.43 kg

DRUGS (1)
  1. BROVANA [Suspect]
     Active Substance: ARFORMOTEROL TARTRATE
     Indication: BRONCHITIS CHRONIC
     Dosage: 15MCG/2ML, QD AND BID/NEBULIZER
     Route: 055

REACTIONS (1)
  - Tremor [Not Recovered/Not Resolved]
